FAERS Safety Report 20834712 (Version 1)
Quarter: 2022Q2

REPORT INFORMATION
  Report Type: Spontaneous
  Country: US (occurrence: US)
  Receive Date: 20220516
  Receipt Date: 20220516
  Transmission Date: 20220721
  Serious: No
  Sender: FDA-Public Use
  Company Number: US-NOVARTISTESTPH-NVSC2022US111982

PATIENT

DRUGS (2)
  1. LETROZOLE [Suspect]
     Active Substance: LETROZOLE
     Indication: Product used for unknown indication
     Dosage: UNK
     Route: 065
     Dates: start: 20220405
  2. IBRANCE [Suspect]
     Active Substance: PALBOCICLIB
     Indication: Breast cancer
     Dosage: 75 MG, QD (21 DAYS OFF 7 DAYS)
     Route: 048
     Dates: start: 20211209

REACTIONS (3)
  - Platelet count decreased [Unknown]
  - Incorrect dose administered [Unknown]
  - Back pain [Unknown]

NARRATIVE: CASE EVENT DATE: 20220405
